FAERS Safety Report 9678154 (Version 1)
Quarter: 2013Q4

REPORT INFORMATION
  Report Type: Spontaneous
  Country: US (occurrence: US)
  Receive Date: 20131108
  Receipt Date: 20131108
  Transmission Date: 20140711
  Serious: No
  Sender: FDA-Public Use
  Company Number: US-UPSHER-SMITH LABORATORIES, INC.-13000105

PATIENT
  Age: 74 Year
  Sex: Male

DRUGS (4)
  1. JANTOVEN [Suspect]
     Indication: ANTICOAGULANT THERAPY
     Dosage: 5 MG, QD
     Route: 048
     Dates: start: 20130114
  2. CLONIDINE [Concomitant]
     Dosage: UNK
  3. LABETALOL [Concomitant]
     Dosage: UNK
  4. 5 UNIDENTIFIED CONCOMITANT MEDICATIONS [Concomitant]

REACTIONS (1)
  - Dyspnoea [Recovered/Resolved]
